FAERS Safety Report 19009347 (Version 1)
Quarter: 2021Q1

REPORT INFORMATION
  Report Type: Spontaneous
  Country: US (occurrence: US)
  Receive Date: 20210316
  Receipt Date: 20210316
  Transmission Date: 20210420
  Serious: Yes (Other)
  Sender: FDA-Public Use
  Company Number: US-STRIDES ARCOLAB LIMITED-2021SP002453

PATIENT
  Age: 34 Year
  Sex: Female

DRUGS (6)
  1. TRIAMCINOLONE ACETONIDE. [Suspect]
     Active Substance: TRIAMCINOLONE ACETONIDE
     Dosage: 500 MILLIGRAM AFTER SIXTH PARACENTESIS
     Route: 033
  2. TRIAMCINOLONE ACETONIDE. [Suspect]
     Active Substance: TRIAMCINOLONE ACETONIDE
     Indication: ASCITES
     Dosage: 500 MILLIGRAM AFTER REMOVAL OF 5 LITERS OF FLUID BY PARACENTESIS
     Route: 033
  3. METHOTREXATE. [Concomitant]
     Active Substance: METHOTREXATE
     Indication: ASCITES
     Dosage: UNK
     Route: 065
  4. PREDNISOLONE. [Suspect]
     Active Substance: PREDNISOLONE
     Indication: ASCITES
     Dosage: UNK
     Route: 065
  5. HYDROCORTISONE. [Suspect]
     Active Substance: HYDROCORTISONE
     Indication: ADRENAL INSUFFICIENCY
     Dosage: UNK
     Route: 065
  6. TRIAMCINOLONE ACETONIDE. [Suspect]
     Active Substance: TRIAMCINOLONE ACETONIDE
     Dosage: 500 MILLIGRAM AFTER SECOND PARACENTESIS
     Route: 033

REACTIONS (3)
  - Fungal peritonitis [Unknown]
  - Adrenal insufficiency [Unknown]
  - Hyperglycaemia [Recovered/Resolved]
